FAERS Safety Report 5410989-X (Version None)
Quarter: 2007Q3

REPORT INFORMATION
  Report Type: 
  Country: None (occurrence: None)
  Receive Date: 20070810
  Receipt Date: 20070706
  Transmission Date: 20080115
  Serious: No
  Sender: FDA-Public Use
  Company Number: A0662191A

PATIENT
  Age: 68 Year
  Sex: Male

DRUGS (7)
  1. ALTABAX [Suspect]
     Route: 061
     Dates: start: 20070706
  2. PREDNISONE TAB [Concomitant]
  3. LABETALOL HCL [Concomitant]
  4. NORVASC [Concomitant]
  5. CELEXA [Concomitant]
  6. SPIRONOLACTONE [Concomitant]
  7. BACTROBAN [Concomitant]

REACTIONS (2)
  - BURNING SENSATION [None]
  - PAIN [None]
